FAERS Safety Report 5340278-3 (Version None)
Quarter: 2007Q2

REPORT INFORMATION
  Report Type: 
  Country: None (occurrence: None)
  Receive Date: 20070531
  Receipt Date: 20070523
  Transmission Date: 20071010
  Serious: Yes (Hospitalization, Other)
  Sender: FDA-Public Use
  Company Number: US-AMGEN-STX189141

PATIENT
  Sex: Female
  Weight: 52.4 kg

DRUGS (8)
  1. ENBREL [Suspect]
     Indication: RHEUMATOID ARTHRITIS
     Route: 058
     Dates: start: 20041102
  2. ZANAFLEX [Concomitant]
     Dates: start: 20020321
  3. OXYCONTIN [Concomitant]
  4. MS CONTIN [Concomitant]
  5. MORPHINE [Concomitant]
  6. DURAGESIC-100 [Concomitant]
  7. PERCOCET [Concomitant]
  8. DARVOCET-N 100 [Concomitant]

REACTIONS (3)
  - BILE DUCT STENOSIS [None]
  - PANCREATITIS [None]
  - SPHINCTER OF ODDI DYSFUNCTION [None]
